FAERS Safety Report 9701798 (Version 3)
Quarter: 2013Q4

REPORT INFORMATION
  Report Type: Spontaneous
  Country: US (occurrence: US)
  Receive Date: 20131121
  Receipt Date: 20131217
  Transmission Date: 20140711
  Serious: Yes (Life-Threatening, Hospitalization, Other)
  Sender: FDA-Public Use
  Company Number: US-ACTELION-A-NJ2012-72250

PATIENT
  Age: 40 Year
  Sex: Female

DRUGS (1)
  1. TRACLEER [Suspect]
     Indication: PULMONARY ARTERIAL HYPERTENSION
     Dosage: UNK
     Route: 048

REACTIONS (8)
  - Chest tube insertion [Recovering/Resolving]
  - Renal failure chronic [Recovering/Resolving]
  - Lupus nephritis [Recovering/Resolving]
  - Dialysis [Recovering/Resolving]
  - Pericardial effusion [Recovering/Resolving]
  - Pulmonary hypertension [Recovering/Resolving]
  - Acute respiratory failure [Recovering/Resolving]
  - Cardiac failure congestive [Recovering/Resolving]
